FAERS Safety Report 8207922-4 (Version None)
Quarter: 2012Q1

REPORT INFORMATION
  Report Type: 
  Country: None (occurrence: None)
  Receive Date: 20120314
  Receipt Date: 20120305
  Transmission Date: 20120608
  Serious: Yes (Hospitalization, Other)
  Sender: FDA-Public Use
  Company Number: TR-JNJFOC-20120303992

PATIENT
  Age: 13 Year
  Sex: Male
  Weight: 4.5 kg

DRUGS (13)
  1. SERTRALINE HYDROCHLORIDE [Suspect]
     Indication: DEPRESSION
     Route: 065
  2. CONCERTA [Suspect]
     Route: 065
  3. CONCERTA [Suspect]
     Route: 065
  4. RITALIN [Suspect]
     Indication: ATTENTION DEFICIT/HYPERACTIVITY DISORDER
     Route: 065
  5. CONCERTA [Suspect]
     Route: 065
  6. CONCERTA [Suspect]
     Indication: CONDUCT DISORDER
     Route: 065
  7. CONCERTA [Suspect]
     Route: 065
  8. CONCERTA [Suspect]
     Route: 065
  9. CONCERTA [Suspect]
     Indication: ATTENTION DEFICIT/HYPERACTIVITY DISORDER
     Route: 065
  10. CONCERTA [Suspect]
     Route: 065
  11. RISPERDAL [Suspect]
     Route: 048
  12. RITALIN [Suspect]
     Route: 065
  13. RISPERDAL [Suspect]
     Indication: CONDUCT DISORDER
     Route: 048

REACTIONS (3)
  - SUICIDE ATTEMPT [None]
  - ABNORMAL BEHAVIOUR [None]
  - DEPRESSION [None]
